FAERS Safety Report 8127582-0 (Version None)
Quarter: 2012Q1

REPORT INFORMATION
  Report Type: 
  Country: None (occurrence: None)
  Receive Date: 20120210
  Receipt Date: 20120203
  Transmission Date: 20120608
  Serious: Yes (Other)
  Sender: FDA-Public Use
  Company Number: AU-SANOFI-AVENTIS-2012SA007179

PATIENT
  Age: 31 Year
  Sex: Female

DRUGS (5)
  1. ASPIRIN [Concomitant]
  2. PROGYNOVA [Concomitant]
  3. PREDNISOLONE [Concomitant]
  4. ENOXAPARIN SODIUM [Suspect]
     Route: 065
     Dates: start: 20110901
  5. PROGESTERONE [Concomitant]

REACTIONS (3)
  - ASCITES [None]
  - CONTUSION [None]
  - MATERNAL EXPOSURE DURING PREGNANCY [None]
